FAERS Safety Report 8020540-6 (Version None)
Quarter: 2012Q1

REPORT INFORMATION
  Report Type: 
  Country: None (occurrence: None)
  Receive Date: 20120103
  Receipt Date: 20111223
  Transmission Date: 20120608
  Serious: Yes (Hospitalization)
  Sender: FDA-Public Use
  Company Number: DE-ROCHE-1017993

PATIENT
  Age: 63 Year
  Sex: Female
  Weight: 65 kg

DRUGS (3)
  1. VITAMIN D [Concomitant]
     Dosage: 1000 IE
     Dates: start: 20100613
  2. CALCIUM SUPPLEMENT [Concomitant]
  3. BONIVA [Suspect]
     Indication: OSTEOPOROSIS POSTMENOPAUSAL
     Route: 042
     Dates: start: 20100621

REACTIONS (1)
  - SPINAL FRACTURE [None]
